FAERS Safety Report 5481205-8 (Version None)
Quarter: 2007Q4

REPORT INFORMATION
  Report Type: 
  Country: None (occurrence: None)
  Receive Date: 20071010
  Receipt Date: 20071003
  Transmission Date: 20080405
  Serious: Yes (Hospitalization, Other)
  Sender: FDA-Public Use
  Company Number: PHEH2007US13149

PATIENT
  Sex: Male
  Weight: 73.469 kg

DRUGS (11)
  1. SANDOSTATIN LAR [Suspect]
     Indication: CARCINOID SYNDROME
     Dosage: 20 MG, QMO
     Dates: start: 20070701
  2. SANDOSTATIN LAR [Suspect]
     Dosage: 40 MG, EVERY 4 WEEKS
     Route: 030
     Dates: start: 20010901
  3. EPOGEN [Concomitant]
  4. CALCIUM CARBONATE [Concomitant]
  5. LASIX [Concomitant]
  6. BICITRA [Concomitant]
  7. NIFEDIPINE [Concomitant]
  8. INSULIN [Concomitant]
  9. CREON [Concomitant]
  10. VITAMIN B-12 [Concomitant]
  11. CIMETIDINE [Concomitant]

REACTIONS (2)
  - BLOOD CREATININE ABNORMAL [None]
  - RENAL IMPAIRMENT [None]
